FAERS Safety Report 16642623 (Version 2)
Quarter: 2019Q4

REPORT INFORMATION
  Report Type: Spontaneous
  Country: US (occurrence: US)
  Receive Date: 20190729
  Receipt Date: 20191022
  Transmission Date: 20200122
  Serious: No
  Sender: FDA-Public Use
  Company Number: US-PFIZER INC-2019318364

PATIENT
  Age: 64 Year
  Sex: Female

DRUGS (1)
  1. XELJANZ XR [Suspect]
     Active Substance: TOFACITINIB CITRATE
     Dosage: 11 MG, UNK

REACTIONS (6)
  - Vomiting [Unknown]
  - Nausea [Unknown]
  - Magnetic resonance imaging abnormal [Unknown]
  - Skin lesion [Unknown]
  - Abdominal pain upper [Unknown]
  - Liver disorder [Unknown]
